FAERS Safety Report 5263544-9 (Version None)
Quarter: 2007Q1

REPORT INFORMATION
  Report Type: 
  Country: None (occurrence: None)
  Receive Date: 20070313
  Receipt Date: 20070301
  Transmission Date: 20070707
  Serious: Yes (Other)
  Sender: FDA-Public Use
  Company Number: PHEH2007US02175

PATIENT
  Age: 71 Year
  Sex: Male

DRUGS (5)
  1. ZOMETA [Suspect]
     Indication: PROSTATE CANCER
     Dosage: 3,5MG, EVERY 4 WEEKS
     Dates: start: 20021101
  2. PREDNISONE [Concomitant]
     Indication: PROSTATE CANCER
     Dosage: 5 MG, BID
     Dates: start: 20031118
  3. TAXOTERE [Concomitant]
     Dosage: 75MG, WEEKLY
     Dates: start: 20021118, end: 20050408
  4. TAXOTERE [Concomitant]
     Dosage: 155MG EVERY 3 WEEKS
     Dates: start: 20060428
  5. DECADRON [Concomitant]
     Dosage: 4 MG BID
     Dates: start: 20031119

REACTIONS (8)
  - BONE DISORDER [None]
  - COMPUTERISED TOMOGRAM ABNORMAL [None]
  - ERYTHEMA [None]
  - GLUCOSE TOLERANCE IMPAIRED [None]
  - ORAL SOFT TISSUE DISORDER [None]
  - OSTEONECROSIS [None]
  - PAIN IN JAW [None]
  - SWELLING [None]
